FAERS Safety Report 8605554-7 (Version None)
Quarter: 2012Q3

REPORT INFORMATION
  Report Type: 
  Country: None (occurrence: None)
  Receive Date: 20120820
  Receipt Date: 20120814
  Transmission Date: 20120928
  Serious: Yes (Other)
  Sender: FDA-Public Use
  Company Number: US-PFIZER INC-2011072569

PATIENT
  Age: 43 Year
  Sex: Female
  Weight: 84.354 kg

DRUGS (19)
  1. ATACAND [Concomitant]
     Indication: HYPERTENSION
     Dosage: 16 MG, DAILY
     Dates: start: 20100401
  2. NITROLINGUAL [Concomitant]
     Dosage: SPRAY 1 DOSE UNDER THE TONGUE AT THE ONSET OF CHEST PAIN, REPEAT EVERY 5 MINUTES, MAXIMUM 3 DOSES
     Dates: start: 20120203
  3. WARFARIN SODIUM [Concomitant]
     Dosage: 5 MG DAILY
     Dates: start: 20120615
  4. TOPAMAX [Concomitant]
     Dosage: 50 MG, 2X/DAY
     Dates: start: 20120321
  5. OMEPRAZOLE [Concomitant]
     Dosage: 20 MG DAILY
     Dates: start: 20120615
  6. LASIX [Concomitant]
     Dosage: 20 MG, 2X/DAY
     Dates: start: 20120615
  7. FENOFIBRATE [Concomitant]
     Dosage: 54 MG DAILY
     Dates: start: 20120605
  8. XANAX [Concomitant]
     Dosage: 1 MG, 3X/DAY
     Dates: start: 20120517
  9. TEMAZEPAM [Concomitant]
     Dosage: 30 MG, AT BEDTIME
     Dates: start: 20120321
  10. PRISTIQ [Suspect]
     Indication: DEPRESSION
     Dosage: 50 MG, 2X/DAY
     Route: 048
  11. COREG [Concomitant]
     Indication: CARDIAC DISORDER
     Dosage: 12.5 MG, 2X/DAY
     Dates: start: 20110630
  12. IMDUR [Concomitant]
     Dosage: 30 MG, EVERY MORNING
     Dates: start: 20120615
  13. KLOR-CON [Concomitant]
     Dosage: 20 MEQ, DAILY
     Dates: start: 20120615
  14. NORCO [Concomitant]
     Indication: PAIN
     Dosage: 7.5/325MG 1-2 TABLETS EVERY 4-6 HOURS AS NEEDED
     Dates: start: 20120605
  15. ASPIRIN [Concomitant]
     Dosage: 325 MG 2 TABLET, 1X/DAY
     Dates: start: 20120321
  16. LISINOPRIL [Concomitant]
     Dosage: 5 MG 0.5 TABLET, DAILY
     Dates: start: 20120203
  17. INFLUENZA VACCINE [Concomitant]
     Dosage: UNK
     Dates: start: 20111101
  18. TOPAMAX [Concomitant]
     Dosage: 25 MG 2 TABLET, 2X/DAY
     Dates: start: 20120203
  19. PLAVIX [Concomitant]
     Dosage: 75 MG DAILY
     Dates: start: 20120207

REACTIONS (12)
  - AMNESIA [None]
  - SUICIDAL IDEATION [None]
  - PAIN IN EXTREMITY [None]
  - MEMORY IMPAIRMENT [None]
  - ARTERIAL OCCLUSIVE DISEASE [None]
  - VOMITING [None]
  - DYSPNOEA [None]
  - CRYING [None]
  - MYOCARDIAL INFARCTION [None]
  - CARDIAC FAILURE [None]
  - DEPRESSION [None]
  - MALAISE [None]
